FAERS Safety Report 12506238 (Version 2)
Quarter: 2016Q4

REPORT INFORMATION
  Report Type: Spontaneous
  Country: US (occurrence: US)
  Receive Date: 20160628
  Receipt Date: 20161219
  Transmission Date: 20170207
  Serious: Yes (Life-Threatening, Hospitalization, Other)
  Sender: FDA-Public Use
  Company Number: US-CELGENEUS-USA-2016066343

PATIENT
  Sex: Male

DRUGS (4)
  1. REVLIMID [Suspect]
     Active Substance: LENALIDOMIDE
     Dosage: 10-15 MG
     Route: 048
     Dates: start: 201008
  2. REVLIMID [Suspect]
     Active Substance: LENALIDOMIDE
     Dosage: MG
     Route: 048
     Dates: start: 20160607, end: 2016
  3. REVLIMID [Suspect]
     Active Substance: LENALIDOMIDE
     Indication: PLASMA CELL MYELOMA
     Dosage: MG
     Route: 048
     Dates: start: 200901
  4. REVLIMID [Suspect]
     Active Substance: LENALIDOMIDE
     Dosage: MG
     Route: 048
     Dates: start: 201601

REACTIONS (2)
  - Pulmonary embolism [Unknown]
  - Thrombosis [Unknown]
